FAERS Safety Report 9416513 (Version 3)
Quarter: 2013Q3

REPORT INFORMATION
  Report Type: Spontaneous
  Country: US (occurrence: US)
  Receive Date: 20130724
  Receipt Date: 20130924
  Transmission Date: 20140515
  Serious: No
  Sender: FDA-Public Use
  Company Number: US-JNJFOC-20130700735

PATIENT
  Age: 5 Decade
  Sex: Male

DRUGS (10)
  1. INVEGA SUSTENNA [Suspect]
     Indication: SCHIZOPHRENIA, PARANOID TYPE
     Route: 030
  2. INVEGA SUSTENNA [Suspect]
     Indication: SCHIZOPHRENIA, PARANOID TYPE
     Route: 030
  3. INVEGA SUSTENNA [Suspect]
     Indication: SCHIZOPHRENIA, PARANOID TYPE
     Dosage: NDC # 50458-564-01
     Route: 030
  4. FLOMAX [Concomitant]
     Indication: BENIGN PROSTATIC HYPERPLASIA
     Route: 065
  5. DEPAKOTE [Concomitant]
     Indication: DRUG THERAPY
     Route: 065
  6. DEPAKOTE [Concomitant]
     Indication: PSYCHOTIC DISORDER
     Route: 065
  7. SEROQUEL [Concomitant]
     Indication: SCHIZOPHRENIA
     Route: 065
  8. SEROQUEL [Concomitant]
     Indication: PSYCHOTIC DISORDER
     Route: 065
  9. COGENTIN [Concomitant]
     Indication: PSYCHOTIC DISORDER
     Route: 065
  10. VISTARIL [Concomitant]
     Indication: ANXIETY
     Route: 065

REACTIONS (4)
  - Psychotic disorder [Unknown]
  - Drug dose omission [Unknown]
  - Syringe issue [Unknown]
  - Inappropriate schedule of drug administration [Unknown]
